FAERS Safety Report 16624095 (Version 1)
Quarter: 2019Q3

REPORT INFORMATION
  Report Type: Spontaneous
  Country: JP (occurrence: JP)
  Receive Date: 20190724
  Receipt Date: 20190724
  Transmission Date: 20191004
  Serious: Yes (Other)
  Sender: FDA-Public Use
  Company Number: JP-009507513-1907JPN013094

PATIENT
  Age: 7 Decade
  Sex: Male

DRUGS (1)
  1. TEDIZOLID PHOSPHATE. [Suspect]
     Active Substance: TEDIZOLID PHOSPHATE
     Dosage: DAILY DOSE 200 MG
     Route: 048

REACTIONS (1)
  - Bone marrow failure [Unknown]
